FAERS Safety Report 8439141-0 (Version None)
Quarter: 2012Q2

REPORT INFORMATION
  Report Type: 
  Country: None (occurrence: None)
  Receive Date: 20120615
  Receipt Date: 20120605
  Transmission Date: 20120825
  Serious: Yes (Hospitalization, Other)
  Sender: FDA-Public Use
  Company Number: AR-BRISTOL-MYERS SQUIBB COMPANY-16547382

PATIENT
  Age: 69 Year
  Sex: Female

DRUGS (8)
  1. PREDNISONE [Concomitant]
  2. LEVOTHYROXINE SODIUM [Concomitant]
  3. OMEPRAZOLE [Concomitant]
  4. ABATACEPT [Suspect]
     Indication: RHEUMATOID ARTHRITIS
     Route: 042
     Dates: start: 20071023, end: 20120130
  5. LEUCOVORIN CALCIUM [Concomitant]
  6. METHOTREXATE [Suspect]
  7. VALSARTAN [Concomitant]
  8. TRIMEBUTINE [Concomitant]

REACTIONS (6)
  - ARTHROPATHY [None]
  - GASTRITIS [None]
  - COLON CANCER [None]
  - NEPHROLITHIASIS [None]
  - DIVERTICULUM INTESTINAL [None]
  - IRON DEFICIENCY ANAEMIA [None]
